FAERS Safety Report 12270925 (Version 1)
Quarter: 2016Q2

REPORT INFORMATION
  Report Type: Spontaneous
  Country: US (occurrence: US)
  Receive Date: 20160415
  Receipt Date: 20160415
  Transmission Date: 20160815
  Serious: No
  Sender: FDA-Public Use
  Company Number: US-009507513-1604USA005743

PATIENT
  Sex: Female

DRUGS (2)
  1. FOSAMAX [Suspect]
     Active Substance: ALENDRONATE SODIUM
     Route: 048
  2. ACTONEL [Concomitant]
     Active Substance: RISEDRONATE SODIUM

REACTIONS (2)
  - Osteoporosis [Unknown]
  - Drug ineffective [Unknown]
